FAERS Safety Report 4293556-3 (Version None)
Quarter: 2004Q1

REPORT INFORMATION
  Report Type: 
  Country: None (occurrence: None)
  Receive Date: 20040126
  Receipt Date: 20030827
  Transmission Date: 20041129
  Serious: No
  Sender: FDA-Public Use
  Company Number: USA030845685

PATIENT
  Age: 52 Year
  Sex: Female

DRUGS (1)
  1. FORTEO [Suspect]
     Dosage: `
     Dates: start: 20030719

REACTIONS (1)
  - ALOPECIA [None]
